FAERS Safety Report 7272638 (Version 3)
Quarter: 2013Q2

REPORT INFORMATION
  Report Type: Spontaneous
  Country: FR (occurrence: FR)
  Receive Date: 20100207
  Receipt Date: 20130624
  Transmission Date: 20140414
  Serious: Yes (Hospitalization, Other)
  Sender: FDA-Public Use
  Company Number: FR-BRISTOL-MYERS SQUIBB COMPANY-14936801

PATIENT
  Age: 48 Year
  Sex: Male
  Weight: 61 kg

DRUGS (5)
  1. REYATAZ CAPS 300 MG [Suspect]
     Route: 048
     Dates: start: 20040524, end: 20090611
  2. NORVIR [Concomitant]
     Indication: HIV INFECTION
     Route: 048
     Dates: start: 20040524
  3. ZIAGEN [Concomitant]
     Route: 048
     Dates: start: 20040524
  4. VIDEX [Concomitant]
     Route: 048
     Dates: start: 20040524
  5. RIVOTRIL [Concomitant]
     Route: 048
     Dates: start: 20040524

REACTIONS (3)
  - Pyonephrosis [Recovered/Resolved]
  - Nephrolithiasis [Recovered/Resolved]
  - Renal colic [Recovered/Resolved]
